FAERS Safety Report 7340267-3 (Version None)
Quarter: 2011Q1

REPORT INFORMATION
  Report Type: 
  Country: None (occurrence: None)
  Receive Date: 20110309
  Receipt Date: 20110307
  Transmission Date: 20110831
  Serious: Yes (Hospitalization)
  Sender: FDA-Public Use
  Company Number: FR-BIOGENIDEC-2009BI041453

PATIENT
  Age: 68 Year
  Sex: Male

DRUGS (9)
  1. DANTRIUM [Concomitant]
  2. XALATAN [Concomitant]
  3. PREVISCAN [Concomitant]
     Route: 048
  4. AMLOR [Concomitant]
  5. MOPRAL [Concomitant]
  6. TYSABRI [Suspect]
     Indication: MULTIPLE SCLEROSIS
     Route: 042
     Dates: start: 20070601, end: 20090101
  7. DOXAZOSIN MESYLATE [Concomitant]
  8. LIORESAL [Concomitant]
  9. DICLOXACILLIN [Concomitant]

REACTIONS (1)
  - ISCHAEMIC STROKE [None]
